FAERS Safety Report 8611402-1 (Version None)
Quarter: 2012Q3

REPORT INFORMATION
  Report Type: 
  Country: None (occurrence: None)
  Receive Date: 20120822
  Receipt Date: 20120813
  Transmission Date: 20120928
  Serious: Yes (Other)
  Sender: FDA-Public Use
  Company Number: US-ASTRAZENECA-2012SE57076

PATIENT
  Age: 53 Year
  Sex: Male
  Weight: 77.1 kg

DRUGS (4)
  1. CRESTOR [Suspect]
     Indication: BLOOD CHOLESTEROL INCREASED
     Route: 048
     Dates: start: 20100201
  2. LISINOPRIL [Suspect]
     Route: 048
     Dates: start: 20100201
  3. EFFIENT [Concomitant]
  4. METOPROLOL TARTRATE [Concomitant]

REACTIONS (3)
  - DRUG DOSE OMISSION [None]
  - THROMBOSIS [None]
  - ARTERIAL OCCLUSIVE DISEASE [None]
